FAERS Safety Report 6876922-9 (Version None)
Quarter: 2010Q3

REPORT INFORMATION
  Report Type: 
  Country: None (occurrence: None)
  Receive Date: 20100727
  Receipt Date: 20100713
  Transmission Date: 20110219
  Serious: Yes (Disabling)
  Sender: FDA-Public Use
  Company Number: US-ELI_LILLY_AND_COMPANY-US201006003990

PATIENT
  Sex: Male

DRUGS (1)
  1. FORTEO [Suspect]
     Dates: start: 20100609

REACTIONS (1)
  - NO ADVERSE EVENT [None]
